FAERS Safety Report 4475853-1 (Version None)
Quarter: 2004Q4

REPORT INFORMATION
  Report Type: 
  Country: None (occurrence: None)
  Receive Date: 20041015
  Receipt Date: 20040902
  Transmission Date: 20050328
  Serious: Yes (Death)
  Sender: FDA-Public Use
  Company Number: PHBS2004JP11646

PATIENT
  Age: 61 Year
  Sex: Male

DRUGS (1)
  1. NEORAL [Suspect]
     Indication: LIVER TRANSPLANT
     Route: 065

REACTIONS (1)
  - ABDOMINAL ABSCESS [None]
